FAERS Safety Report 5146801-6 (Version None)
Quarter: 2006Q4

REPORT INFORMATION
  Report Type: 
  Country: None (occurrence: None)
  Receive Date: 20061109
  Receipt Date: 20061103
  Transmission Date: 20070319
  Serious: Yes (Death)
  Sender: FDA-Public Use
  Company Number: US-BRISTOL-MYERS SQUIBB COMPANY-13566948

PATIENT
  Age: 37 Year
  Sex: Female
  Weight: 69 kg

DRUGS (7)
  1. IFEX [Suspect]
     Indication: ENDOMETRIAL CANCER
     Route: 042
  2. NEXIUM [Concomitant]
  3. LOVENOX [Concomitant]
  4. CEFEPIME [Concomitant]
  5. FLAGYL [Concomitant]
  6. ZOFRAN [Concomitant]
     Dates: start: 20061030
  7. MESNA [Concomitant]
     Dates: start: 20061030

REACTIONS (1)
  - ENCEPHALITIS [None]
